FAERS Safety Report 4889468-4 (Version None)
Quarter: 2006Q1

REPORT INFORMATION
  Report Type: 
  Country: None (occurrence: None)
  Receive Date: 20060120
  Receipt Date: 20060113
  Transmission Date: 20060701
  Serious: Yes (Hospitalization, Other)
  Sender: FDA-Public Use
  Company Number: FRWYE297913JAN06

PATIENT
  Age: 39 Year
  Sex: Female

DRUGS (4)
  1. TAZOCILLINE         (PIPERACILLIN/TAZOBACTAM) [Suspect]
     Indication: ANORECTAL INFECTION
     Dosage: INTRAVENOUS
     Route: 042
     Dates: start: 20050812, end: 20050822
  2. VANCOMYCIN [Suspect]
     Indication: ANORECTAL INFECTION
     Dosage: 2.2 G 1X PER 1 INTRAVENOUS
     Route: 042
     Dates: start: 20050812, end: 20050822
  3. OMEPRAZOLE [Concomitant]
  4. ACETAMINOPHEN [Concomitant]

REACTIONS (6)
  - BLOOD ALKALINE PHOSPHATASE INCREASED [None]
  - C-REACTIVE PROTEIN INCREASED [None]
  - GAMMA-GLUTAMYLTRANSFERASE INCREASED [None]
  - PYREXIA [None]
  - RASH MACULAR [None]
  - TOXIC SKIN ERUPTION [None]
